FAERS Safety Report 6521510-7 (Version None)
Quarter: 2009Q4

REPORT INFORMATION
  Report Type: 
  Country: None (occurrence: None)
  Receive Date: 20091230
  Receipt Date: 20091221
  Transmission Date: 20100525
  Serious: Yes (Hospitalization)
  Sender: FDA-Public Use
  Company Number: AU-BRISTOL-MYERS SQUIBB COMPANY-14722797

PATIENT
  Age: 82 Year
  Sex: Female

DRUGS (8)
  1. KARVEA [Suspect]
     Indication: HYPERTENSION
     Route: 048
     Dates: start: 20090108, end: 20090219
  2. ACTONEL WITH CALCIUM (COPACKAGED) [Suspect]
     Indication: OSTEOPOROSIS
     Route: 048
     Dates: start: 20090222
  3. COVERSYL PLUS [Suspect]
  4. PERINDOPRIL ERBUMINE [Concomitant]
  5. INDERAL [Concomitant]
  6. NEXIUM [Concomitant]
  7. OSTELIN [Concomitant]
  8. SEREPAX [Concomitant]

REACTIONS (4)
  - BLOOD POTASSIUM DECREASED [None]
  - BLOOD SODIUM DECREASED [None]
  - PNEUMONIA [None]
  - SKIN CHAPPED [None]
